FAERS Safety Report 4878650-8 (Version None)
Quarter: 2006Q1

REPORT INFORMATION
  Report Type: 
  Country: None (occurrence: None)
  Receive Date: 20060110
  Receipt Date: 20051228
  Transmission Date: 20060701
  Serious: Yes (Hospitalization, Other)
  Sender: FDA-Public Use
  Company Number: 23518

PATIENT
  Age: 69 Year
  Sex: Male
  Weight: 102.0593 kg

DRUGS (1)
  1. LEUCOVORIN CALCIUM FOR INJ. 100MG - BEDFORD LABS, INC. [Suspect]
     Indication: COLORECTAL CANCER METASTATIC
     Dosage: 908MG/EVERY 14 DAYS/IV
     Route: 042
     Dates: start: 20040406

REACTIONS (1)
  - PULMONARY EMBOLISM [None]
